FAERS Safety Report 8928049 (Version 1)
Quarter: 2012Q4

REPORT INFORMATION
  Report Type: Spontaneous
  Country: PT (occurrence: None)
  Receive Date: 20121119
  Receipt Date: 20121119
  Transmission Date: 20130627
  Serious: Yes (Life-Threatening, Hospitalization)
  Sender: FDA-Public Use
  Company Number: IND1-PT-2012-0057

PATIENT
  Age: 85 Year
  Sex: Male

DRUGS (2)
  1. INDOCID [Suspect]
     Dosage: (25 MG, 2 IN 1 D)
     Route: 048
     Dates: start: 20120926, end: 20120926
  2. CLOPIDOGREL [Concomitant]

REACTIONS (4)
  - Blood pressure increased [None]
  - Ischaemic stroke [None]
  - Haemorrhagic stroke [None]
  - Gastrointestinal haemorrhage [None]
